FAERS Safety Report 6684452-2 (Version None)
Quarter: 2010Q2

REPORT INFORMATION
  Report Type: 
  Country: None (occurrence: None)
  Receive Date: 20100416
  Receipt Date: 20100408
  Transmission Date: 20101027
  Serious: Yes (Disabling)
  Sender: FDA-Public Use
  Company Number: GXKR2010GB04002

PATIENT
  Age: 29 Year
  Sex: Female
  Weight: 70 kg

DRUGS (6)
  1. VENLAFAXINE HCL [Suspect]
     Indication: DEPRESSION
     Dosage: 75 MG, UNK
     Route: 048
     Dates: start: 20100204, end: 20100311
  2. CITALOPRAM HYDROBROMIDE [Concomitant]
     Dosage: 40 MG, UNK
     Dates: start: 20090409
  3. GABAPENTIN [Concomitant]
     Dosage: 300 MG, QID
     Route: 048
     Dates: start: 20090213
  4. HYOSCINE HBR HYT [Concomitant]
     Indication: IRRITABLE BOWEL SYNDROME
     Dosage: 10 MG, BID
     Dates: start: 20091218
  5. METHYLCELLULOSE [Concomitant]
     Indication: CONSTIPATION
     Dosage: 500 MG, BID
     Route: 048
     Dates: start: 20090201
  6. SODIUM PICOSULFATE [Concomitant]
     Indication: CONSTIPATION
     Dosage: 25 MG, QID
     Route: 048
     Dates: start: 20091218

REACTIONS (2)
  - DYSARTHRIA [None]
  - HEMIPLEGIA [None]
